FAERS Safety Report 17564267 (Version 2)
Quarter: 2020Q1

REPORT INFORMATION
  Report Type: Spontaneous
  Country: US (occurrence: US)
  Receive Date: 20200320
  Receipt Date: 20200331
  Transmission Date: 20200409
  Serious: Yes (Hospitalization, Other)
  Sender: FDA-Public Use
  Company Number: US-ASTRAZENECA-2020SE39265

PATIENT
  Age: 20902 Day
  Sex: Female
  Weight: 158.8 kg

DRUGS (8)
  1. LYRICA [Concomitant]
     Active Substance: PREGABALIN
     Indication: NEUROPATHY PERIPHERAL
     Route: 048
     Dates: start: 2009
  2. BYDUREON BCISE [Suspect]
     Active Substance: EXENATIDE
     Indication: GLYCOSYLATED HAEMOGLOBIN INCREASED
     Route: 058
     Dates: start: 2019
  3. LISINOPRIL. [Concomitant]
     Active Substance: LISINOPRIL
     Indication: HYPERTENSION
     Route: 048
  4. ASPIRIN. [Concomitant]
     Active Substance: ASPIRIN
     Indication: COAGULOPATHY
     Route: 048
     Dates: start: 2008
  5. GENERIC LANTUS [Concomitant]
     Indication: BLOOD GLUCOSE ABNORMAL
     Dosage: 100 UNITS, AT NIGHT
     Route: 058
  6. METFORMIN [Concomitant]
     Active Substance: METFORMIN HYDROCHLORIDE
     Indication: RENAL DISORDER
     Route: 048
  7. TRADJENTA [Concomitant]
     Active Substance: LINAGLIPTIN
     Indication: DIABETES MELLITUS
     Route: 048
     Dates: start: 2019
  8. LEVOTHYROXINE. [Concomitant]
     Active Substance: LEVOTHYROXINE
     Indication: THYROID DISORDER
     Route: 048
     Dates: start: 2015

REACTIONS (12)
  - Malaise [Unknown]
  - Epistaxis [Unknown]
  - Contusion [Unknown]
  - Nasopharyngitis [Unknown]
  - Incorrect dose administered by device [Unknown]
  - Blood glucose decreased [Recovered/Resolved]
  - Sinusitis [Unknown]
  - Wrong technique in device usage process [Unknown]
  - Device issue [Unknown]
  - Glycosylated haemoglobin increased [Unknown]
  - Pain [Unknown]
  - Weight decreased [Unknown]

NARRATIVE: CASE EVENT DATE: 20200217
